FAERS Safety Report 17728355 (Version 1)
Quarter: 2020Q2

REPORT INFORMATION
  Report Type: Spontaneous
  Country: US (occurrence: US)
  Receive Date: 20200430
  Receipt Date: 20200430
  Transmission Date: 20200714
  Serious: Yes (Disabling, Other)
  Sender: FDA-Public Use
  Company Number: US-HIKMA PHARMACEUTICALS USA INC.-US-H14001-20-02067

PATIENT
  Sex: Male

DRUGS (1)
  1. MITIGARE [Suspect]
     Active Substance: COLCHICINE
     Indication: GOUT
     Route: 065

REACTIONS (3)
  - Toe amputation [Unknown]
  - Disability [Unknown]
  - Drug ineffective [Unknown]
